FAERS Safety Report 17599938 (Version 5)
Quarter: 2025Q3

REPORT INFORMATION
  Report Type: Spontaneous
  Country: EU (occurrence: EU)
  Receive Date: 20200330
  Receipt Date: 20250703
  Transmission Date: 20251021
  Serious: Yes (Hospitalization)
  Sender: TAKEDA
  Company Number: EU-KEDRION-2020-000080

PATIENT
  Age: 63 Year
  Sex: Male

DRUGS (1)
  1. HUMAN IMMUNOGLOBULIN G [Suspect]
     Active Substance: HUMAN IMMUNOGLOBULIN G
     Indication: Good syndrome
     Dosage: 600 MILLIGRAM/KILOGRAM, MONTHLY
     Dates: start: 201810

REACTIONS (6)
  - Blood blister [Recovered/Resolved]
  - Infusion site cellulitis [Unknown]
  - Infusion related reaction [Unknown]
  - Drug effective for unapproved indication [Unknown]
  - Therapy responder [Unknown]
  - Off label use [Unknown]

NARRATIVE: CASE EVENT DATE: 20181201
